FAERS Safety Report 12132049 (Version 1)
Quarter: 2016Q1

REPORT INFORMATION
  Report Type: Spontaneous
  Country: US (occurrence: None)
  Receive Date: 20160229
  Receipt Date: 20160229
  Transmission Date: 20160526
  Serious: Yes (Disabling, Other)
  Sender: FDA-Public Use
  Company Number: None

PATIENT
  Age: 55 Year
  Sex: Female
  Weight: 99.79 kg

DRUGS (15)
  1. VITAMIN E [Concomitant]
     Active Substance: .ALPHA.-TOCOPHEROL
  2. FERROUS SULFATE [Concomitant]
     Active Substance: FERROUS SULFATE\FERROUS SULFATE, DRIED
  3. FLONASE [Concomitant]
     Active Substance: FLUTICASONE PROPIONATE
  4. PROBIOTIC [Concomitant]
     Active Substance: PROBIOTICS NOS
  5. SINGULAIR [Concomitant]
     Active Substance: MONTELUKAST SODIUM
  6. LORATADINE. [Concomitant]
     Active Substance: LORATADINE
  7. OMEPRAZOLE 20 MG [Suspect]
     Active Substance: OMEPRAZOLE
     Indication: GASTROOESOPHAGEAL REFLUX DISEASE
     Dosage: 1 TAB BID TWICE DAILY TAKEN BY MOUTH
     Route: 048
     Dates: start: 20060101, end: 20160215
  8. WOMEN^S MULTI VITAMIN [Concomitant]
  9. CALCIUM [Concomitant]
     Active Substance: CALCIUM
  10. COMBIVENT [Concomitant]
     Active Substance: ALBUTEROL SULFATE\IPRATROPIUM BROMIDE
  11. VITAMIN D3 [Concomitant]
     Active Substance: CHOLECALCIFEROL
  12. SUFAFED [Concomitant]
  13. ZYRTEC [Concomitant]
     Active Substance: CETIRIZINE HYDROCHLORIDE
  14. NAPHCON [Concomitant]
     Active Substance: NAPHAZOLINE HYDROCHLORIDE
  15. SYMBICORT [Concomitant]
     Active Substance: BUDESONIDE\FORMOTEROL FUMARATE DIHYDRATE

REACTIONS (6)
  - Disease progression [None]
  - Arthralgia [None]
  - Musculoskeletal pain [None]
  - Gait disturbance [None]
  - Migraine [None]
  - Mobility decreased [None]

NARRATIVE: CASE EVENT DATE: 20160215
